FAERS Safety Report 7961076-8 (Version None)
Quarter: 2011Q4

REPORT INFORMATION
  Report Type: 
  Country: None (occurrence: None)
  Receive Date: 20111201
  Receipt Date: 20111201
  Transmission Date: 20120403
  Serious: Yes (Life-Threatening, Other)
  Sender: FDA-Public Use
  Company Number: None

PATIENT
  Age: 74 Year
  Sex: Female
  Weight: 53.0709 kg

DRUGS (2)
  1. LEVOFLOXACIN [Suspect]
     Indication: LOWER RESPIRATORY TRACT INFECTION
     Dosage: 500 MG - ONE PER DAY BY  MOUTH
     Route: 048
     Dates: start: 20110701, end: 20110706
  2. LEVOFLOXACIN [Suspect]
     Indication: BRONCHITIS
     Dosage: 500 MG - ONE PER DAY BY  MOUTH
     Route: 048
     Dates: start: 20110701, end: 20110706

REACTIONS (2)
  - DIZZINESS [None]
  - GAIT DISTURBANCE [None]
